FAERS Safety Report 20794729 (Version 1)
Quarter: 2022Q2

REPORT INFORMATION
  Report Type: Spontaneous
  Country: US (occurrence: US)
  Receive Date: 20220506
  Receipt Date: 20220506
  Transmission Date: 20220720
  Serious: Yes (Other)
  Sender: FDA-Public Use
  Company Number: US-PFIZER INC-202200629858

PATIENT
  Age: 37 Year
  Sex: Male

DRUGS (1)
  1. SUNITINIB MALATE [Suspect]
     Active Substance: SUNITINIB MALATE
     Indication: Dermatofibrosarcoma protuberans
     Dosage: 37.5 MG, DAILY

REACTIONS (3)
  - Drug intolerance [Unknown]
  - Off label use [Unknown]
  - Intentional dose omission [Unknown]
